FAERS Safety Report 18877098 (Version 2)
Quarter: 2021Q1

REPORT INFORMATION
  Report Type: Spontaneous
  Country: US (occurrence: US)
  Receive Date: 20210211
  Receipt Date: 20210217
  Transmission Date: 20210420
  Serious: Yes (Hospitalization)
  Sender: FDA-Public Use
  Company Number: US-AMGEN-USASP2021021149

PATIENT
  Age: 57 Year
  Sex: Male

DRUGS (11)
  1. XIFAXAN [Concomitant]
     Active Substance: RIFAXIMIN
  2. CARVEDILOL. [Concomitant]
     Active Substance: CARVEDILOL
  3. RANOLAZINE. [Concomitant]
     Active Substance: RANOLAZINE
  4. ROSUVASTATIN. [Concomitant]
     Active Substance: ROSUVASTATIN
  5. TRAZODONE [Concomitant]
     Active Substance: TRAZODONE HYDROCHLORIDE
  6. BRILINTA [Concomitant]
     Active Substance: TICAGRELOR
  7. POTASSIUM CHLORIDE. [Concomitant]
     Active Substance: POTASSIUM CHLORIDE
  8. FUROSEMIDE. [Concomitant]
     Active Substance: FUROSEMIDE
  9. OTEZLA [Suspect]
     Active Substance: APREMILAST
     Indication: PSORIASIS
     Dosage: 30 MILLIGRAM, BID
     Route: 048
     Dates: start: 20200331
  10. FEROSUL [Concomitant]
     Active Substance: FERROUS SULFATE
  11. CLAVULANATE POTASSIUM [Concomitant]
     Active Substance: CLAVULANATE POTASSIUM

REACTIONS (2)
  - Unevaluable event [Not Recovered/Not Resolved]
  - Illness [Recovered/Resolved]
